FAERS Safety Report 5604815-3 (Version None)
Quarter: 2008Q1

REPORT INFORMATION
  Report Type: 
  Country: None (occurrence: None)
  Receive Date: 20080118
  Receipt Date: 20080107
  Transmission Date: 20080703
  Serious: Yes (Hospitalization)
  Sender: FDA-Public Use
  Company Number: SPV1-2008-00054

PATIENT
  Sex: Male

DRUGS (2)
  1. PENTASA [Suspect]
     Indication: CROHN'S DISEASE
     Dosage: 500 MG, 2X/DAY:QID, ORAL
     Route: 048
     Dates: start: 20010101
  2. NEXIUM [Concomitant]

REACTIONS (2)
  - BIPOLAR DISORDER [None]
  - HEART RATE ABNORMAL [None]
